FAERS Safety Report 6115544-4 (Version None)
Quarter: 2009Q1

REPORT INFORMATION
  Report Type: 
  Country: None (occurrence: None)
  Receive Date: 20090313
  Receipt Date: 20090302
  Transmission Date: 20090719
  Serious: Yes (Hospitalization, Other)
  Sender: FDA-Public Use
  Company Number: IT-ELI_LILLY_AND_COMPANY-IT200812004847

PATIENT
  Sex: Female

DRUGS (8)
  1. ZYPREXA [Suspect]
     Dosage: 210 MG, UNK
     Route: 048
     Dates: start: 20081120, end: 20081120
  2. SERTRALINE [Concomitant]
     Indication: BIPOLAR DISORDER
     Dosage: UNK, UNK
  3. SERTRALINE [Concomitant]
     Dosage: 750 MG, UNK
     Route: 048
     Dates: start: 20081120, end: 20081120
  4. SERTRALINE [Concomitant]
     Dosage: UNK, UNK
  5. RISPERIDONE [Concomitant]
  6. MIRTAZAPINE [Concomitant]
  7. ANTIHYPERTENSIVES [Concomitant]
  8. ALLOPURINOL [Concomitant]

REACTIONS (6)
  - DEEP VEIN THROMBOSIS [None]
  - EPILEPSY [None]
  - OVERDOSE [None]
  - PULMONARY EMBOLISM [None]
  - RESPIRATORY ARREST [None]
  - SUICIDE ATTEMPT [None]
